FAERS Safety Report 16011900 (Version 1)
Quarter: 2019Q1

REPORT INFORMATION
  Report Type: Report from Study
  Country: None (occurrence: DE)
  Receive Date: 20190227
  Receipt Date: 20190227
  Transmission Date: 20190418
  Serious: Yes (Hospitalization)
  Sender: FDA-Public Use
  Company Number: DE-ABBVIE-19S-062-2671962-00

PATIENT
  Age: 82 Year
  Sex: Female

DRUGS (3)
  1. DUODOPA [Suspect]
     Active Substance: CARBIDOPA\LEVODOPA
     Indication: PARKINSON^S DISEASE
     Dosage: MD 3 ML; CRD 0.8 ML/H; ED 0 ML
     Route: 050
     Dates: start: 20190213, end: 201902
  2. DUODOPA [Suspect]
     Active Substance: CARBIDOPA\LEVODOPA
     Dosage: MD 3 ML; CRD 0.8 ML/H; CRN 0.8 ML; ED 0 ML
     Route: 050
     Dates: start: 201902, end: 201902
  3. DUODOPA [Suspect]
     Active Substance: CARBIDOPA\LEVODOPA
     Dosage: MD 3 ML; CRD 2.0 ML/H; CRN 2.0 ML; ED 0.5 ML
     Route: 050
     Dates: start: 201902

REACTIONS (2)
  - General physical health deterioration [Recovering/Resolving]
  - On and off phenomenon [Recovering/Resolving]

NARRATIVE: CASE EVENT DATE: 20190218
